FAERS Safety Report 10236339 (Version 1)
Quarter: 2014Q2

REPORT INFORMATION
  Report Type: Spontaneous
  Country: US (occurrence: US)
  Receive Date: 20140613
  Receipt Date: 20140613
  Transmission Date: 20141212
  Serious: No
  Sender: FDA-Public Use
  Company Number: US-GLAXOSMITHKLINE-A1035712A

PATIENT
  Age: 16 Year
  Sex: Male

DRUGS (1)
  1. TREXIMET [Suspect]
     Indication: MIGRAINE
     Route: 048

REACTIONS (2)
  - Off label use [Unknown]
  - Drug administration error [Unknown]
